FAERS Safety Report 4494021-0 (Version None)
Quarter: 2004Q4

REPORT INFORMATION
  Report Type: 
  Country: None (occurrence: None)
  Receive Date: 20041105
  Receipt Date: 20040609
  Transmission Date: 20050328
  Serious: Yes (Hospitalization)
  Sender: FDA-Public Use
  Company Number: 200412009JP

PATIENT
  Age: 44 Year
  Sex: Female
  Weight: 56.5 kg

DRUGS (10)
  1. LANTUS [Suspect]
     Indication: DIABETES MELLITUS
     Route: 058
     Dates: start: 20040330, end: 20040524
  2. OPTIPEN (INSULIN PUMP) [Suspect]
  3. PURSENNID [Concomitant]
     Indication: CONSTIPATION
     Dosage: DOSE: 6 TABLETS
     Route: 048
     Dates: start: 20000314, end: 20040517
  4. CINAL [Concomitant]
     Indication: PIGMENTATION DISORDER
     Route: 048
     Dates: start: 20040423, end: 20040510
  5. STRONG NEO-MINOPHAGEN C [Concomitant]
     Indication: ALOPECIA
     Dosage: DOSE: 6 TABLETS
     Route: 048
     Dates: start: 20031211, end: 20040510
  6. ALLELOCK [Concomitant]
     Indication: ALOPECIA
     Dosage: DOSE: 2 TABLETS
     Route: 048
     Dates: start: 20031030, end: 20040510
  7. NOVORAPID [Concomitant]
     Indication: DIABETES MELLITUS
     Dosage: DOSE: 42-64; DOSE UNIT: UNITS
     Route: 058
     Dates: start: 20020227
  8. ANTEBATE [Concomitant]
     Indication: ALOPECIA
     Dosage: DOSE: 1-2 TIMES
     Route: 003
     Dates: start: 20040402
  9. PULMICORT [Concomitant]
     Indication: ALLERGIC BRONCHITIS
     Route: 055
     Dates: start: 20040525
  10. NOVOLIN [Concomitant]
     Indication: DIABETES MELLITUS
     Dosage: DOSE: 10-14; DOSE UNIT: UNITS
     Route: 058
     Dates: start: 20040525

REACTIONS (10)
  - ALANINE AMINOTRANSFERASE INCREASED [None]
  - ANOREXIA [None]
  - ASPARTATE AMINOTRANSFERASE INCREASED [None]
  - BLOOD ALKALINE PHOSPHATASE INCREASED [None]
  - BLOOD LACTATE DEHYDROGENASE INCREASED [None]
  - DEHYDRATION [None]
  - DIABETES MELLITUS [None]
  - GAMMA-GLUTAMYLTRANSFERASE INCREASED [None]
  - HEPATIC FUNCTION ABNORMAL [None]
  - PYREXIA [None]
